FAERS Safety Report 22220170 (Version 1)
Quarter: 2023Q2

REPORT INFORMATION
  Report Type: Spontaneous
  Country: US (occurrence: None)
  Receive Date: 20230414
  Receipt Date: 20230414
  Transmission Date: 20230722
  Serious: Yes (Hospitalization)
  Sender: FDA-Public Use
  Company Number: None

PATIENT
  Sex: Female

DRUGS (24)
  1. TEZSPIRE [Suspect]
     Active Substance: TEZEPELUMAB-EKKO
     Indication: Asthma
     Dosage: 210MG/1.91ML??INJECT 1 SYRINGE UNDER THE SKIN (SUBCUTANEOUS INJECTION) EVERY FOUR WEEKS
     Route: 058
     Dates: start: 20220818
  2. ASPIRIN TAB EC [Concomitant]
  3. ATENOLOL [Concomitant]
     Active Substance: ATENOLOL
  4. ATORVASTATIN [Concomitant]
     Active Substance: ATORVASTATIN
  5. CHOLESTYRAMI POW RESIN [Concomitant]
  6. CODEINE SULF TAB [Concomitant]
  7. FISH OIL CAP [Concomitant]
  8. GABAPENTIN [Concomitant]
     Active Substance: GABAPENTIN
  9. GLUCOS/CHOND TAB [Concomitant]
  10. HIZENTRA INJ [Concomitant]
  11. JANUVIA TAB [Concomitant]
  12. LEVEMIR INJ FLEXTOUC [Concomitant]
  13. LEVOTHYROXIN TAB [Concomitant]
  14. METFORMIN TAB ER [Concomitant]
  15. MULTIVITAMIN TAB ADULTS [Concomitant]
  16. OMEPRAZOLE SODIUM [Concomitant]
     Active Substance: OMEPRAZOLE SODIUM
  17. PLAQUENIL [Concomitant]
     Active Substance: HYDROXYCHLOROQUINE SULFATE
  18. PREDNISONE [Concomitant]
     Active Substance: PREDNISONE
  19. SERTRALINE HYDROCHLORIDE [Concomitant]
     Active Substance: SERTRALINE HYDROCHLORIDE
  20. SINGULAIR TAB [Concomitant]
  21. TRAZODONE TAB [Concomitant]
  22. TRIAMT/HCTZ TAB [Concomitant]
  23. VITAMIN D CAP [Concomitant]
  24. XYZAL TAB [Concomitant]

REACTIONS (1)
  - Inappropriate schedule of product administration [None]
